FAERS Safety Report 10191056 (Version 3)
Quarter: 2014Q2

REPORT INFORMATION
  Report Type: Spontaneous
  Country: GB (occurrence: GB)
  Receive Date: 20140523
  Receipt Date: 20140613
  Transmission Date: 20141212
  Serious: Yes (Hospitalization)
  Sender: FDA-Public Use
  Company Number: GB-JNJFOC-20140510104

PATIENT
  Age: 9 Year
  Sex: Male

DRUGS (2)
  1. CALPOL SIX PLUS SUGAR FREE [Suspect]
     Route: 048
  2. CALPOL SIX PLUS SUGAR FREE [Suspect]
     Indication: PRODUCT USED FOR UNKNOWN INDICATION
     Route: 048

REACTIONS (3)
  - Accidental exposure to product by child [Unknown]
  - Expired product administered [Unknown]
  - Product closure issue [Unknown]
